FAERS Safety Report 7111694-4 (Version None)
Quarter: 2010Q4

REPORT INFORMATION
  Report Type: 
  Country: None (occurrence: None)
  Receive Date: 20101118
  Receipt Date: 20101111
  Transmission Date: 20110411
  Serious: Yes (Other)
  Sender: FDA-Public Use
  Company Number: US-ABBOTT-10P-163-0685212-00

PATIENT
  Sex: Female

DRUGS (2)
  1. LUPRON DEPOT [Suspect]
     Indication: PRODUCT USED FOR UNKNOWN INDICATION
  2. ADD-BACK SELECTIVE HORMONE THERAPY [Concomitant]
     Indication: PRODUCT USED FOR UNKNOWN INDICATION

REACTIONS (18)
  - ALOPECIA [None]
  - ANXIETY [None]
  - ARTIFICIAL MENOPAUSE [None]
  - ASTHMA [None]
  - CEREBROVASCULAR ACCIDENT [None]
  - COAGULOPATHY [None]
  - DRY SKIN [None]
  - FEELING ABNORMAL [None]
  - FLUID RETENTION [None]
  - HOT FLUSH [None]
  - MEMORY IMPAIRMENT [None]
  - MIGRAINE [None]
  - NAIL DISORDER [None]
  - OSTEOPOROSIS [None]
  - PANIC DISORDER [None]
  - SURGERY [None]
  - VULVOVAGINAL DRYNESS [None]
  - WEIGHT INCREASED [None]
